FAERS Safety Report 16285991 (Version 5)
Quarter: 2020Q2

REPORT INFORMATION
  Report Type: Spontaneous
  Country: US (occurrence: US)
  Receive Date: 20190508
  Receipt Date: 20200625
  Transmission Date: 20200713
  Serious: No
  Sender: FDA-Public Use
  Company Number: US-PFIZER INC-2019192918

PATIENT
  Age: 63 Year
  Sex: Female
  Weight: 81.65 kg

DRUGS (9)
  1. LYRICA [Suspect]
     Active Substance: PREGABALIN
     Indication: NERVE INJURY
     Dosage: 200 MG, 2X/DAY
     Route: 048
  2. AMOXICILLIN. [Concomitant]
     Active Substance: AMOXICILLIN
     Indication: INFECTION
     Dosage: UNK
  3. AMOXICILLIN. [Concomitant]
     Active Substance: AMOXICILLIN
     Indication: GINGIVAL OPERATION
  4. HYDROCODONE [Concomitant]
     Active Substance: HYDROCODONE
     Dosage: UNK
  5. LYRICA [Suspect]
     Active Substance: PREGABALIN
     Indication: RHEUMATOID ARTHRITIS
  6. LYRICA [Suspect]
     Active Substance: PREGABALIN
     Indication: RESTLESS LEGS SYNDROME
     Dosage: 50 MG, UNK
  7. LYRICA [Suspect]
     Active Substance: PREGABALIN
     Indication: FIBROMYALGIA
     Dosage: 400 MG, 1X/DAY (2 TABLETS 200 MG ONE DAILY)
  8. LYRICA [Suspect]
     Active Substance: PREGABALIN
     Indication: DIABETES MELLITUS
  9. GABAPENTIN. [Concomitant]
     Active Substance: GABAPENTIN
     Indication: NERVE INJURY
     Dosage: 800 MG, 2X/DAY
     Route: 048

REACTIONS (3)
  - Weight decreased [Unknown]
  - Malaise [Unknown]
  - Insomnia [Unknown]
